FAERS Safety Report 20383729 (Version 1)
Quarter: 2022Q1

REPORT INFORMATION
  Report Type: Spontaneous
  Country: US (occurrence: None)
  Receive Date: 20220127
  Receipt Date: 20220127
  Transmission Date: 20220423
  Serious: Yes (Other)
  Sender: FDA-Public Use
  Company Number: None

PATIENT
  Age: 78 Year
  Sex: Male

DRUGS (13)
  1. CAPECITABINE [Suspect]
     Active Substance: CAPECITABINE
     Indication: Colon cancer
     Dosage: OTHER FREQUENCY : TWICEADAYFOR14DAYS;?
     Route: 048
     Dates: start: 20220113, end: 20220127
  2. ASPIRIN [Concomitant]
     Active Substance: ASPIRIN
  3. ATORVASTATIN [Concomitant]
  4. BIOTIN [Concomitant]
  5. DIETARY SUPPLEMENT [Concomitant]
     Active Substance: DIETARY SUPPLEMENT
  6. FINASTERIDE [Concomitant]
  7. FOLIC ACID [Concomitant]
  8. INSULIN ASPART [Concomitant]
  9. MAGNESIUM [Concomitant]
  10. OMEPRAZOLE [Concomitant]
  11. TAMSULOSIN [Concomitant]
  12. VITAMIN B [Concomitant]
     Active Substance: VITAMIN B
  13. VITAMIN E [Concomitant]
     Active Substance: .ALPHA.-TOCOPHEROL

REACTIONS (3)
  - Oral pain [None]
  - Lip pain [None]
  - Rash [None]

NARRATIVE: CASE EVENT DATE: 20220127
